FAERS Safety Report 8432219-7 (Version None)
Quarter: 2012Q2

REPORT INFORMATION
  Report Type: 
  Country: None (occurrence: None)
  Receive Date: 20120613
  Receipt Date: 20120606
  Transmission Date: 20120825
  Serious: Yes (Other)
  Sender: FDA-Public Use
  Company Number: IT-BRISTOL-MYERS SQUIBB COMPANY-16677197

PATIENT
  Age: 76 Year
  Sex: Female

DRUGS (5)
  1. LEXOTAN [Concomitant]
  2. FLUOROURACIL [Suspect]
     Indication: COLON CANCER STAGE II
     Route: 042
     Dates: start: 20110329
  3. FOLIC ACID [Concomitant]
  4. ERBITUX [Suspect]
     Indication: COLON CANCER STAGE II
     Dosage: DOSE REDUCED BY 75%
     Route: 042
     Dates: start: 20120228
  5. BARACLUDE [Concomitant]

REACTIONS (1)
  - DYSPHAGIA [None]
